FAERS Safety Report 18610547 (Version 1)
Quarter: 2020Q4

REPORT INFORMATION
  Report Type: Spontaneous
  Country: US (occurrence: US)
  Receive Date: 20201214
  Receipt Date: 20201214
  Transmission Date: 20210114
  Serious: Yes (Hospitalization, Other)
  Sender: FDA-Public Use
  Company Number: US-DRREDDYS-USA/USA/20/0130022

PATIENT
  Age: 15 Year
  Sex: Female

DRUGS (1)
  1. LAMOTRIGINE TABLETS [Suspect]
     Active Substance: LAMOTRIGINE
     Indication: PRODUCT USED FOR UNKNOWN INDICATION

REACTIONS (3)
  - Drug-induced liver injury [Unknown]
  - Haemophagocytic lymphohistiocytosis [Unknown]
  - Drug reaction with eosinophilia and systemic symptoms [Unknown]
